FAERS Safety Report 15728563 (Version 1)
Quarter: 2018Q4

REPORT INFORMATION
  Report Type: Spontaneous
  Country: DE (occurrence: DE)
  Receive Date: 20181217
  Receipt Date: 20181217
  Transmission Date: 20190205
  Serious: Yes (Other)
  Sender: FDA-Public Use
  Company Number: DE-BAYER-2018-227668

PATIENT
  Age: 26 Year
  Sex: Female
  Weight: 67 kg

DRUGS (1)
  1. CIPROBAY [Suspect]
     Active Substance: CIPROFLOXACIN
     Indication: CYSTITIS
     Dosage: 1 DF, UNK
     Route: 048
     Dates: start: 20171226, end: 20171231

REACTIONS (5)
  - Suicidal ideation [Recovered/Resolved]
  - Obsessive thoughts [Recovered/Resolved]
  - Tendon pain [Recovered/Resolved]
  - Condition aggravated [Recovered/Resolved]
  - Self-injurious ideation [Recovered/Resolved]

NARRATIVE: CASE EVENT DATE: 20171227
